FAERS Safety Report 8172083-7 (Version None)
Quarter: 2012Q1

REPORT INFORMATION
  Report Type: 
  Country: None (occurrence: None)
  Receive Date: 20120228
  Receipt Date: 20120221
  Transmission Date: 20120608
  Serious: No
  Sender: FDA-Public Use
  Company Number: US-PFIZER INC-2012047166

PATIENT
  Age: 50 Year
  Sex: Female

DRUGS (1)
  1. EPIPEN [Suspect]
     Dosage: UNK
     Dates: start: 20120221

REACTIONS (2)
  - INJECTION SITE DISCOMFORT [None]
  - INJURY ASSOCIATED WITH DEVICE [None]
